FAERS Safety Report 22194916 (Version 1)
Quarter: 2023Q2

REPORT INFORMATION
  Report Type: Spontaneous
  Country: US (occurrence: US)
  Receive Date: 20230411
  Receipt Date: 20230411
  Transmission Date: 20230721
  Serious: No
  Sender: FDA-Public Use
  Company Number: US-JNJFOC-20230375017

PATIENT
  Age: 74 Year
  Sex: Male

DRUGS (1)
  1. MENS ROGAINE EXTRA STRENGTH [Suspect]
     Active Substance: MINOXIDIL
     Indication: Alopecia
     Dosage: DOSE: NOT ALOT EACH TIME FIRST DAY ONCE, SECOND DAY TWICE A DAY
     Route: 061
     Dates: start: 20230323

REACTIONS (3)
  - Application site ulcer [Not Recovered/Not Resolved]
  - Application site rash [Not Recovered/Not Resolved]
  - Product use in unapproved indication [Unknown]

NARRATIVE: CASE EVENT DATE: 20230301
